FAERS Safety Report 15210473 (Version 1)
Quarter: 2018Q3

REPORT INFORMATION
  Report Type: Spontaneous
  Country: US (occurrence: US)
  Receive Date: 20180629
  Receipt Date: 20180629
  Transmission Date: 20181010
  Serious: No
  Sender: FDA-Public Use
  Company Number: None

PATIENT
  Sex: Male

DRUGS (2)
  1. VALSARTAN HCT 160?25 [Suspect]
     Active Substance: HYDROCHLOROTHIAZIDE\VALSARTAN
  2. VALSARTAN HCT 320?25 [Suspect]
     Active Substance: HYDROCHLOROTHIAZIDE\VALSARTAN

REACTIONS (2)
  - Blood pressure increased [None]
  - Dizziness [None]
